FAERS Safety Report 25014142 (Version 3)
Quarter: 2025Q2

REPORT INFORMATION
  Report Type: Spontaneous
  Country: US (occurrence: US)
  Receive Date: 20250226
  Receipt Date: 20250605
  Transmission Date: 20250716
  Serious: Yes (Death, Hospitalization)
  Sender: PFIZER
  Company Number: US-PFIZER INC-PV202500022504

PATIENT
  Sex: Female
  Weight: 44.444 kg

DRUGS (1)
  1. XELJANZ XR [Suspect]
     Active Substance: TOFACITINIB CITRATE
     Indication: Rheumatoid arthritis
     Dosage: 11 MG, 1X/DAY
     Route: 048
     Dates: start: 202001, end: 202312

REACTIONS (4)
  - Liver injury [Fatal]
  - Cardiac disorder [Fatal]
  - Renal disorder [Fatal]
  - Lung disorder [Fatal]
